FAERS Safety Report 8780495 (Version 1)
Quarter: 2012Q4

REPORT INFORMATION
  Report Type: Spontaneous
  Country: US (occurrence: None)
  Receive Date: 20120906
  Receipt Date: 20120906
  Transmission Date: 20130627
  Serious: No
  Sender: FDA-Public Use
  Company Number: None

PATIENT
  Age: 55 Year
  Sex: Female
  Weight: 72.58 kg

DRUGS (2)
  1. CIPROFLOXACIN [Suspect]
     Dates: start: 20120604, end: 20120618
  2. LITHIUM CARBONATE [Suspect]
     Dates: start: 20120520, end: 20120605

REACTIONS (3)
  - Dizziness [None]
  - Confusional state [None]
  - Loss of consciousness [None]
